FAERS Safety Report 8130515 (Version 2)
Quarter: 2012Q4

REPORT INFORMATION
  Report Type: 
  Country: JP (occurrence: JP)
  Receive Date: 20110912
  Receipt Date: 20121204
  Transmission Date: 20130627
  Serious: Yes (Life-Threatening, Other)
  Sender: FDA-Public Use
  Company Number: JP-BAYER-2011-083997

PATIENT
  Age: 67 Year
  Sex: Female
  Weight: 54 kg

DRUGS (11)
  1. NEXAVAR [Suspect]
     Indication: CARCINOMA HEPATOCELLULAR
     Dosage: 200 mg, BID
     Route: 048
     Dates: start: 20110725, end: 20110829
  2. NIFEDIPINE [Concomitant]
     Indication: HYPERTENSION
     Dosage: Daily dose 20 mg
     Route: 048
     Dates: start: 20110725
  3. SLOW-K [Concomitant]
     Indication: PROPHYLAXIS
     Dosage: Daily dose 1200 mg
     Route: 048
     Dates: start: 20110725
  4. SPIRONOLACTONE [Concomitant]
     Indication: PROPHYLAXIS
     Dosage: Daily dose 25 mg
     Route: 048
     Dates: start: 20110725
  5. FEROTYM [Concomitant]
     Indication: ANAEMIA
     Dosage: Daily dose 50 mg
     Route: 048
     Dates: start: 20110725
  6. URSODEOXYCHOLIC ACID [Concomitant]
     Indication: HEPATIC CIRRHOSIS
     Dosage: Daily dose 300 mg
     Route: 048
     Dates: start: 20110725
  7. MIYA-BM [Concomitant]
     Indication: HEPATIC CIRRHOSIS
     Dosage: Daily dose 3 g
     Route: 048
     Dates: start: 20110725
  8. THYRADIN S [Concomitant]
     Indication: HYPOTHYROIDISM
     Dosage: Daily dose 100 ?g
     Route: 048
     Dates: start: 20110725
  9. AZULENE-GLUTAMINE [Concomitant]
     Indication: VARICES OESOPHAGEAL
     Dosage: Daily dose 2 g
     Route: 048
     Dates: start: 20110725
  10. FAMOSTAGINE [Concomitant]
     Indication: VARICES OESOPHAGEAL
     Dosage: Daily dose 20 mg
     Route: 048
     Dates: start: 20110725
  11. VEGIN [Concomitant]
     Indication: PROPHYLAXIS
     Dosage: UNK
     Route: 061
     Dates: start: 20110725

REACTIONS (3)
  - Ascites [Recovering/Resolving]
  - Jaundice [Not Recovered/Not Resolved]
  - Liver disorder [Not Recovered/Not Resolved]
